FAERS Safety Report 7555644-5 (Version None)
Quarter: 2011Q2

REPORT INFORMATION
  Report Type: 
  Country: None (occurrence: None)
  Receive Date: 20110617
  Receipt Date: 20080520
  Transmission Date: 20111010
  Serious: Yes (Death, Other)
  Sender: FDA-Public Use
  Company Number: PHHY2008CA06545

PATIENT
  Sex: Male

DRUGS (1)
  1. SANDOSTATIN [Suspect]
     Dosage: 20 MG, QMO
     Route: 030
     Dates: start: 20070831, end: 20080416

REACTIONS (2)
  - DEATH [None]
  - ASTHENIA [None]
